FAERS Safety Report 13459343 (Version 1)
Quarter: 2017Q2

REPORT INFORMATION
  Report Type: Spontaneous
  Country: FR (occurrence: FR)
  Receive Date: 20170419
  Receipt Date: 20170419
  Transmission Date: 20170830
  Serious: Yes (Hospitalization)
  Sender: FDA-Public Use
  Company Number: FR-ALLERGAN-1714798US

PATIENT
  Age: 18 Year
  Sex: Male

DRUGS (1)
  1. PYLERA [Suspect]
     Active Substance: BISMUTH SUBCITRATE POTASSIUM\METRONIDAZOLE\TETRACYCLINE HYDROCHLORIDE
     Indication: HELICOBACTER INFECTION
     Dosage: 3 DF, QID
     Route: 048
     Dates: start: 20170318, end: 20170328

REACTIONS (6)
  - Amnesia [Recovered/Resolved]
  - Faeces discoloured [Recovered/Resolved]
  - Brief psychotic disorder with marked stressors [Recovered/Resolved]
  - Diarrhoea [Recovered/Resolved]
  - Decreased appetite [Recovering/Resolving]
  - Vomiting [Recovered/Resolved]
